FAERS Safety Report 16271547 (Version 9)
Quarter: 2019Q3

REPORT INFORMATION
  Report Type: Report from Study
  Country: AU (occurrence: AU)
  Receive Date: 20190506
  Receipt Date: 20190904
  Transmission Date: 20191004
  Serious: Yes (Hospitalization, Other)
  Sender: FDA-Public Use
  Company Number: AU-ROCHE-1838358

PATIENT
  Age: 84 Year
  Sex: Male
  Weight: 96 kg

DRUGS (98)
  1. ZANUBRUTINIB [Suspect]
     Active Substance: ZANUBRUTINIB
     Indication: MARGINAL ZONE LYMPHOMA
     Dosage: CYCLE 1, NUMBER OF CAPSULES 4?LAST DOSE PRIOR TO PULOMARY EDEMA ON 30/SEP/2016
     Route: 048
     Dates: start: 20160928, end: 20161026
  2. ZANUBRUTINIB [Suspect]
     Active Substance: ZANUBRUTINIB
     Dosage: CYCLE 8 NUMBER OF CAPSULES 4
     Route: 048
     Dates: start: 20170412, end: 20170510
  3. ZANUBRUTINIB [Suspect]
     Active Substance: ZANUBRUTINIB
     Dosage: CYCLE 13 NUMBER OF CAPSULES 4
     Route: 048
     Dates: start: 20170831, end: 20170927
  4. ZANUBRUTINIB [Suspect]
     Active Substance: ZANUBRUTINIB
     Dosage: CYCLE 13 NUMBER OF CAPSULES 4?CYCLE 14
     Route: 048
     Dates: start: 20170928, end: 20171122
  5. ZANUBRUTINIB [Suspect]
     Active Substance: ZANUBRUTINIB
     Dosage: CYCLE 17 NUMBER OF CAPSULES 2
     Route: 048
     Dates: start: 20180314, end: 20180508
  6. ZANUBRUTINIB [Suspect]
     Active Substance: ZANUBRUTINIB
     Dosage: CYCLE 19 NUMBER OF CAPSULES 2?ALSO RECEIVED ON 10/AUG/2018
     Route: 048
     Dates: start: 20180704, end: 20180828
  7. ZANUBRUTINIB [Suspect]
     Active Substance: ZANUBRUTINIB
     Dosage: CYCLE 21 NUMBER OF CAPSULES 2
     Route: 048
     Dates: start: 20181024, end: 20181029
  8. BACTRIM DS [Concomitant]
     Active Substance: SULFAMETHOXAZOLE\TRIMETHOPRIM
     Indication: PROPHYLAXIS
     Route: 048
     Dates: start: 20160912
  9. RESONIUM [Concomitant]
     Active Substance: SODIUM POLYSTYRENE SULFONATE
     Route: 048
     Dates: start: 20160929, end: 20160929
  10. LORATADINE. [Concomitant]
     Active Substance: LORATADINE
     Indication: PROPHYLAXIS
     Route: 060
     Dates: start: 20160929, end: 20160929
  11. PARACETAMOL [Concomitant]
     Active Substance: ACETAMINOPHEN
     Route: 048
     Dates: start: 20160930, end: 20160930
  12. AUGMENTIN DUO [Concomitant]
     Active Substance: AMOXICILLIN\CLAVULANATE POTASSIUM
     Indication: GASTROOESOPHAGEAL REFLUX DISEASE
     Dosage: 875/125 MG
     Route: 048
     Dates: start: 20161203, end: 20161212
  13. PREDNISONE. [Concomitant]
     Active Substance: PREDNISONE
     Route: 048
     Dates: start: 20160921, end: 20160923
  14. PREDNISONE. [Concomitant]
     Active Substance: PREDNISONE
     Route: 048
     Dates: start: 20161207, end: 20161211
  15. INDOCID [INDOMETACIN] [Concomitant]
     Active Substance: INDOMETHACIN
     Indication: RENAL COLIC
     Route: 054
     Dates: start: 20180512, end: 20180512
  16. BISOLVON CHESTY [Concomitant]
     Active Substance: BROMHEXINE HYDROCHLORIDE
  17. ZANUBRUTINIB [Suspect]
     Active Substance: ZANUBRUTINIB
     Dosage: CYCLE 6 NUMBER OF CAPSULES 4
     Route: 048
     Dates: start: 20170216, end: 20170314
  18. ZANUBRUTINIB [Suspect]
     Active Substance: ZANUBRUTINIB
     Dosage: CYCLE 15 NUMBER OF CAPSULES 2
     Route: 048
     Dates: start: 20180112, end: 20180112
  19. ZANUBRUTINIB [Suspect]
     Active Substance: ZANUBRUTINIB
     Dosage: CYCLE 20 NUMBER OF CAPSULES 2
     Route: 048
     Dates: start: 20181008, end: 20181023
  20. DEXAMETHASONE. [Concomitant]
     Active Substance: DEXAMETHASONE
     Route: 042
     Dates: start: 20160930, end: 20160930
  21. CEFTRIAXONE. [Concomitant]
     Active Substance: CEFTRIAXONE
     Indication: RENAL COLIC
     Route: 042
     Dates: start: 20171231, end: 20171231
  22. CEFTRIAXONE. [Concomitant]
     Active Substance: CEFTRIAXONE
     Indication: PNEUMONIA
     Route: 042
     Dates: start: 20180512, end: 20180513
  23. AUGMENTIN [Concomitant]
     Active Substance: AMOXICILLIN\CLAVULANATE POTASSIUM
     Indication: RENAL COLIC
     Route: 048
     Dates: start: 20180514, end: 20180518
  24. AUGMENTIN [Concomitant]
     Active Substance: AMOXICILLIN\CLAVULANATE POTASSIUM
     Route: 048
     Dates: start: 20180103, end: 20180108
  25. IRON POLYMALTOSE [Concomitant]
     Active Substance: IRON POLYMALTOSE
     Indication: IRON DEFICIENCY ANAEMIA
     Route: 065
     Dates: start: 20180817, end: 20180817
  26. OBINUTUZUMAB. [Suspect]
     Active Substance: OBINUTUZUMAB
     Dosage: CYCLE 1 DAY 3, TOTAL VOLUME: 250 UNITS MILILITERS. RATE OF INFUSION 50 UNITS MG/HR.
     Route: 065
     Dates: start: 20160930, end: 20160930
  27. OBINUTUZUMAB. [Suspect]
     Active Substance: OBINUTUZUMAB
     Dosage: CYCLE 2 DAY 1 (TOTAL VOLUME 250 ML) INFUSION RATE :100UNITS MG/HR.
     Route: 065
     Dates: start: 20161027, end: 20161027
  28. ZANUBRUTINIB [Suspect]
     Active Substance: ZANUBRUTINIB
     Dosage: CYCLE 7 NUMBER OF CAPSULES 4
     Route: 048
     Dates: start: 20170315, end: 20170411
  29. ZANUBRUTINIB [Suspect]
     Active Substance: ZANUBRUTINIB
     Dosage: CYCLE 11 NUMBER OF CAPSULES 4
     Route: 048
     Dates: start: 20170705, end: 20170802
  30. ZANUBRUTINIB [Suspect]
     Active Substance: ZANUBRUTINIB
     Dosage: CYCLE 16 NUMBER OF CAPSULES 2
     Route: 048
     Dates: start: 20180122, end: 20180122
  31. ZANUBRUTINIB [Suspect]
     Active Substance: ZANUBRUTINIB
     Dosage: CYCLE 18 NUMBER OF CAPSULES 2
     Route: 048
     Dates: start: 20180509, end: 20180703
  32. ZANUBRUTINIB [Suspect]
     Active Substance: ZANUBRUTINIB
     Dosage: DRUG INTERRUPTED
     Route: 048
     Dates: start: 20181030
  33. DEXAMETHASONE. [Concomitant]
     Active Substance: DEXAMETHASONE
     Route: 042
     Dates: start: 20161222, end: 20161222
  34. PARACETAMOL [Concomitant]
     Active Substance: ACETAMINOPHEN
     Route: 048
     Dates: start: 20161006, end: 20161006
  35. PARACETAMOL [Concomitant]
     Active Substance: ACETAMINOPHEN
     Route: 048
     Dates: start: 20161013, end: 20161013
  36. SOMAC [Concomitant]
     Active Substance: PANTOPRAZOLE SODIUM
     Route: 048
     Dates: start: 2011
  37. SPIRIVA [Concomitant]
     Active Substance: TIOTROPIUM BROMIDE MONOHYDRATE
     Route: 048
     Dates: start: 2002
  38. CEFTRIAXONE. [Concomitant]
     Active Substance: CEFTRIAXONE
     Indication: CHRONIC OBSTRUCTIVE PULMONARY DISEASE
     Route: 042
     Dates: start: 20180814, end: 20180815
  39. INFLUENZA VACCINE [Concomitant]
     Active Substance: INFLUENZA VIRUS VACCINE
     Indication: PROPHYLAXIS
     Route: 030
     Dates: start: 20180502, end: 20180502
  40. FUROSEMIDE. [Concomitant]
     Active Substance: FUROSEMIDE
     Route: 042
     Dates: start: 20161001, end: 20161001
  41. LORATADINE. [Concomitant]
     Active Substance: LORATADINE
     Route: 048
     Dates: start: 20161222, end: 20161222
  42. PARACETAMOL [Concomitant]
     Active Substance: ACETAMINOPHEN
     Route: 048
     Dates: start: 20170119, end: 20170119
  43. CRESTOR [Concomitant]
     Active Substance: ROSUVASTATIN CALCIUM
     Route: 048
     Dates: start: 1995
  44. PERINDOPRIL [Concomitant]
     Active Substance: PERINDOPRIL
     Route: 048
     Dates: start: 1995, end: 20170914
  45. AUGMENTIN [Concomitant]
     Active Substance: AMOXICILLIN\CLAVULANATE POTASSIUM
     Indication: IRON DEFICIENCY ANAEMIA
     Route: 048
  46. FUROSEMIDE. [Concomitant]
     Active Substance: FUROSEMIDE
     Route: 048
     Dates: start: 20161001, end: 20161002
  47. ATROVENT [Concomitant]
     Active Substance: IPRATROPIUM BROMIDE
     Route: 065
     Dates: start: 20190730
  48. APIXABAN [Concomitant]
     Active Substance: APIXABAN
     Indication: ATRIAL FIBRILLATION
     Route: 048
     Dates: start: 20190725
  49. ROSUVASTATIN. [Concomitant]
     Active Substance: ROSUVASTATIN
     Indication: MYOCARDIAL ISCHAEMIA
     Route: 048
     Dates: start: 20190719
  50. OBINUTUZUMAB. [Suspect]
     Active Substance: OBINUTUZUMAB
     Dosage: CYCLE 1 DAY 16 TOTAL VLOLUME (250 ML) INFUSION RATE 100 UNITS MG/HR.
     Route: 065
     Dates: start: 20161013, end: 20161013
  51. ZANUBRUTINIB [Suspect]
     Active Substance: ZANUBRUTINIB
     Dosage: CYCLE 9 NUMBER OF CAPSULES 4
     Route: 048
     Dates: start: 20170511, end: 20170606
  52. ZANUBRUTINIB [Suspect]
     Active Substance: ZANUBRUTINIB
     Dosage: CYCLE 12 NUMBER OF CAPSULES 4
     Route: 048
     Dates: start: 20170803, end: 20170830
  53. ZANUBRUTINIB [Suspect]
     Active Substance: ZANUBRUTINIB
     Dosage: CYCLE 1 NUMBER OF CAPSULES 2, DRUG INTRUPPTED.
     Route: 048
     Dates: start: 20161001, end: 20161001
  54. ZANUBRUTINIB [Suspect]
     Active Substance: ZANUBRUTINIB
     Dosage: CYCLE 16 NUMBER OF CAPSULES 4
     Route: 048
     Dates: start: 20180123, end: 20180313
  55. ZANUBRUTINIB [Suspect]
     Active Substance: ZANUBRUTINIB
     Dosage: CYCLE 20 NUMBER OF CAPSULES 2
     Route: 048
     Dates: start: 20180829, end: 20180911
  56. ALLOPURINOL. [Concomitant]
     Active Substance: ALLOPURINOL
     Indication: PROPHYLAXIS
     Route: 048
     Dates: start: 20160911
  57. LORATADINE. [Concomitant]
     Active Substance: LORATADINE
     Route: 048
     Dates: start: 20160930, end: 20160930
  58. LORATADINE. [Concomitant]
     Active Substance: LORATADINE
     Route: 048
     Dates: start: 20170119, end: 20170119
  59. PARACETAMOL [Concomitant]
     Active Substance: ACETAMINOPHEN
     Route: 048
     Dates: start: 20161027, end: 20161027
  60. PARACETAMOL [Concomitant]
     Active Substance: ACETAMINOPHEN
     Route: 048
     Dates: start: 20170216, end: 20170216
  61. HYDROCORTISONE. [Concomitant]
     Active Substance: HYDROCORTISONE
     Dosage: EVERY DAY
     Route: 042
     Dates: start: 20160920, end: 20160920
  62. DILTIAZEM. [Concomitant]
     Active Substance: DILTIAZEM
     Indication: ATRIAL FIBRILLATION
     Route: 048
     Dates: start: 20171114
  63. OBINUTUZUMAB. [Suspect]
     Active Substance: OBINUTUZUMAB
     Dosage: CYCLE 1 DAY 9 (TOTAL VOLUME OF 250 ML) INFUSION RATE OF 100 UNITS MG/HR.
     Route: 065
     Dates: start: 20161006, end: 20161007
  64. OBINUTUZUMAB. [Suspect]
     Active Substance: OBINUTUZUMAB
     Dosage: CYCLE 3 DAY 1 (TOTAL VOLUME 250 ML) INFUSION RATE :100UNITS MG/HR.
     Route: 065
     Dates: start: 20161124, end: 20161124
  65. ZANUBRUTINIB [Suspect]
     Active Substance: ZANUBRUTINIB
     Dosage: CYCLE 2 NUMBER OF CAPSULES 4
     Route: 048
     Dates: start: 20161027, end: 20161123
  66. ZANUBRUTINIB [Suspect]
     Active Substance: ZANUBRUTINIB
     Dosage: CYCLE 3 NUMBER OF CAPSULES 4
     Route: 048
     Dates: start: 20161124, end: 20161221
  67. ZANUBRUTINIB [Suspect]
     Active Substance: ZANUBRUTINIB
     Dosage: CYCLE 5 NUMBER OF CAPSULES 4
     Route: 048
     Dates: start: 20170119, end: 20170215
  68. DEXAMETHASONE. [Concomitant]
     Active Substance: DEXAMETHASONE
     Route: 042
     Dates: start: 20161027, end: 20161027
  69. DEXAMETHASONE. [Concomitant]
     Active Substance: DEXAMETHASONE
     Route: 042
     Dates: start: 20161124, end: 20161124
  70. DEXAMETHASONE. [Concomitant]
     Active Substance: DEXAMETHASONE
     Route: 042
     Dates: start: 20170216, end: 20170216
  71. LORATADINE. [Concomitant]
     Active Substance: LORATADINE
     Route: 048
     Dates: start: 20161124, end: 20161124
  72. SERETIDE [Concomitant]
     Active Substance: FLUTICASONE PROPIONATE\SALMETEROL XINAFOATE
     Dosage: 500/50 PUFF
     Route: 065
     Dates: start: 2002
  73. ROXITHROMYCIN [Concomitant]
     Active Substance: ROXITHROMYCIN
     Indication: GASTROOESOPHAGEAL REFLUX DISEASE
     Route: 048
     Dates: start: 20161208, end: 20161212
  74. INDOCID [INDOMETACIN] [Concomitant]
     Active Substance: INDOMETHACIN
     Indication: NEPHROLITHIASIS
  75. POTASSIUM CHLORIDE. [Concomitant]
     Active Substance: POTASSIUM CHLORIDE
     Route: 048
     Dates: start: 20180815
  76. OBINUTUZUMAB. [Suspect]
     Active Substance: OBINUTUZUMAB
     Indication: MARGINAL ZONE LYMPHOMA
     Dosage: CYCLE 1 DAY 2 INFUSION RATE 25 UNITS/MG?LAST DOSE PRIOR TO PULOMARY EDEMA ON 29/SEP/2016
     Route: 065
     Dates: start: 20160929, end: 20160929
  77. OBINUTUZUMAB. [Suspect]
     Active Substance: OBINUTUZUMAB
     Dosage: CYCLE 4 DAY 1 (TOTAL VOLUME 250 ML) INFUSION RATE :100UNITS MG/HR.
     Route: 065
     Dates: start: 20161222, end: 20161222
  78. OBINUTUZUMAB. [Suspect]
     Active Substance: OBINUTUZUMAB
     Dosage: CYCLE 6 DAY 1 (TOTAL VOLUME 250 ML) INFUSION RATE :100UNITS MG/HR.
     Route: 065
     Dates: start: 20170216, end: 20170216
  79. ZANUBRUTINIB [Suspect]
     Active Substance: ZANUBRUTINIB
     Dosage: CYCLE 4 NUMBER OF CAPSULES 4
     Route: 048
     Dates: start: 20161222, end: 20170118
  80. ZANUBRUTINIB [Suspect]
     Active Substance: ZANUBRUTINIB
     Dosage: CYCLE 13 NUMBER OF CAPSULES 4?CYCLE 1
     Route: 048
     Dates: start: 20161002, end: 20161026
  81. DEXAMETHASONE. [Concomitant]
     Active Substance: DEXAMETHASONE
     Indication: PROPHYLAXIS
     Route: 042
     Dates: start: 20160929, end: 20160929
  82. DEXAMETHASONE. [Concomitant]
     Active Substance: DEXAMETHASONE
     Route: 042
     Dates: start: 20161006, end: 20161006
  83. LORATADINE. [Concomitant]
     Active Substance: LORATADINE
     Route: 048
     Dates: start: 20161027, end: 20161027
  84. LORATADINE. [Concomitant]
     Active Substance: LORATADINE
     Route: 048
     Dates: start: 20161013, end: 20161013
  85. LORATADINE. [Concomitant]
     Active Substance: LORATADINE
     Route: 048
     Dates: start: 20161006, end: 20161006
  86. LORATADINE. [Concomitant]
     Active Substance: LORATADINE
     Route: 048
     Dates: start: 20160216, end: 20160216
  87. PARACETAMOL [Concomitant]
     Active Substance: ACETAMINOPHEN
     Route: 048
     Dates: start: 20161124, end: 20161124
  88. RIVAROXABAN [Concomitant]
     Active Substance: RIVAROXABAN
     Route: 048
     Dates: start: 2000
  89. MOVICOL [Concomitant]
     Active Substance: POLYETHYLENE GLYCOL 3350\POTASSIUM CHLORIDE\SODIUM BICARBONATE\SODIUM CHLORIDE
     Indication: CONSTIPATION
     Dosage: 2 SACHETS
     Route: 048
     Dates: start: 20190730
  90. OBINUTUZUMAB. [Suspect]
     Active Substance: OBINUTUZUMAB
     Dosage: CYCLE 5 DAY 1 (TOTAL VOLUME 250 ML) INFUSION RATE :100UNITS MG/HR.
     Route: 065
     Dates: start: 20170119, end: 20170119
  91. ZANUBRUTINIB [Suspect]
     Active Substance: ZANUBRUTINIB
     Dosage: CYCLE 10 NUMBER OF CAPSULES 4
     Route: 048
     Dates: start: 20170607, end: 20170704
  92. ZANUBRUTINIB [Suspect]
     Active Substance: ZANUBRUTINIB
     Dosage: CYCLE 15 NUMBER OF CAPSULES 4
     Route: 048
     Dates: start: 20171123, end: 20180111
  93. DEXAMETHASONE. [Concomitant]
     Active Substance: DEXAMETHASONE
     Route: 042
     Dates: start: 20161013, end: 20161013
  94. DEXAMETHASONE. [Concomitant]
     Active Substance: DEXAMETHASONE
     Route: 042
     Dates: start: 20170119, end: 20170119
  95. PARACETAMOL [Concomitant]
     Active Substance: ACETAMINOPHEN
     Indication: PROPHYLAXIS
     Route: 048
     Dates: start: 20160929, end: 20160929
  96. PARACETAMOL [Concomitant]
     Active Substance: ACETAMINOPHEN
     Route: 048
     Dates: start: 20161222, end: 20161222
  97. VENTOLIN [Concomitant]
     Active Substance: ALBUTEROL SULFATE
     Dosage: PUFF 2
     Route: 065
     Dates: start: 2002
  98. ATROVENT [Concomitant]
     Active Substance: IPRATROPIUM BROMIDE
     Indication: DYSPNOEA
     Route: 065
     Dates: start: 20190727

REACTIONS (8)
  - Pneumonia pneumococcal [Recovered/Resolved]
  - Nephrolithiasis [Unknown]
  - Ureteral stent insertion [Recovered/Resolved]
  - Infective exacerbation of chronic obstructive airways disease [Recovered/Resolved]
  - Pulmonary oedema [Recovered/Resolved]
  - Pneumonia [Recovered/Resolved]
  - Chronic obstructive pulmonary disease [Recovered/Resolved]
  - Dyspnoea [Recovered/Resolved]

NARRATIVE: CASE EVENT DATE: 20161001
